FAERS Safety Report 17458047 (Version 3)
Quarter: 2020Q4

REPORT INFORMATION
  Report Type: Spontaneous
  Country: US (occurrence: US)
  Receive Date: 20200225
  Receipt Date: 20201217
  Transmission Date: 20210113
  Serious: No
  Sender: FDA-Public Use
  Company Number: US-ROCHE-2510413

PATIENT
  Sex: Female

DRUGS (1)
  1. XOFLUZA [Suspect]
     Active Substance: BALOXAVIR MARBOXIL
     Indication: PRODUCT USED FOR UNKNOWN INDICATION
     Dosage: 2- 40 MG TABLETS
     Route: 048
     Dates: start: 20191224

REACTIONS (3)
  - Product packaging quantity issue [Unknown]
  - Product dose omission issue [Unknown]
  - No adverse event [Unknown]
